FAERS Safety Report 20323470 (Version 1)
Quarter: 2022Q1

REPORT INFORMATION
  Report Type: Spontaneous
  Country: US (occurrence: None)
  Receive Date: 20220111
  Receipt Date: 20220111
  Transmission Date: 20220423
  Serious: Yes (Life-Threatening, Hospitalization)
  Sender: FDA-Public Use
  Company Number: None

PATIENT
  Age: 60 Year
  Sex: Female
  Weight: 78 kg

DRUGS (1)
  1. PROTAMINE SULFATE [Suspect]
     Active Substance: PROTAMINE SULFATE
     Indication: Surgery
     Dates: start: 20211123, end: 20211123

REACTIONS (4)
  - Apnoeic attack [None]
  - Hypotension [None]
  - Incorrect drug administration rate [None]
  - Cardiac arrest [None]

NARRATIVE: CASE EVENT DATE: 20211123
